FAERS Safety Report 4599436-8 (Version None)
Quarter: 2005Q1

REPORT INFORMATION
  Report Type: 
  Country: None (occurrence: None)
  Receive Date: 20050127
  Receipt Date: 20041013
  Transmission Date: 20050727
  Serious: No
  Sender: FDA-Public Use
  Company Number: USA041081161

PATIENT
  Age: 41 Year
  Sex: Female
  Weight: 57 kg

DRUGS (3)
  1. STRATTERA [Suspect]
     Indication: ATTENTION DEFICIT/HYPERACTIVITY DISORDER
     Dosage: 60 MG SDAY
     Dates: start: 20040901
  2. WELLBUTRIN [Concomitant]
  3. ZOLOFT [Concomitant]

REACTIONS (2)
  - TENSION [None]
  - TREMOR [None]
